APPROVED DRUG PRODUCT: METHAZOLAMIDE
Active Ingredient: METHAZOLAMIDE
Strength: 50MG
Dosage Form/Route: TABLET;ORAL
Application: A040001 | Product #002 | TE Code: AB
Applicant: ANI PHARMACEUTICALS INC
Approved: Jun 30, 1993 | RLD: No | RS: No | Type: RX